FAERS Safety Report 12721147 (Version 1)
Quarter: 2016Q3

REPORT INFORMATION
  Report Type: Report from Study
  Country: BR (occurrence: BR)
  Receive Date: 20160907
  Receipt Date: 20160907
  Transmission Date: 20161109
  Serious: Yes (Other)
  Sender: FDA-Public Use
  Company Number: PHHY2016BR121651

PATIENT
  Sex: Male
  Weight: 63 kg

DRUGS (7)
  1. SOMALGIN [Concomitant]
     Active Substance: ASPIRIN\DIHYDROXYALUMINUM AMINOACETATE ANHYDROUS\MAGNESIUM CARBONATE
     Indication: CARDIAC DISORDER
     Dosage: 100 MG, QD
     Route: 065
  2. GARDENAL//PHENOBARBITAL [Concomitant]
     Active Substance: PHENOBARBITAL
     Indication: CESTODE INFECTION
     Dosage: 100 MG, QD
     Route: 048
  3. SIMVASTATIN. [Concomitant]
     Active Substance: SIMVASTATIN
     Indication: BLOOD CHOLESTEROL INCREASED
     Route: 048
  4. EXELON PATCH [Suspect]
     Active Substance: RIVASTIGMINE
     Indication: MEMORY IMPAIRMENT
     Dosage: 9.5 MG, QD PATCH 10 (CM2)
     Route: 062
     Dates: start: 201601
  5. MEMANTINE. [Concomitant]
     Active Substance: MEMANTINE
     Indication: PRODUCT USED FOR UNKNOWN INDICATION
     Dosage: 10 MG, BID
     Route: 048
  6. EXELON PATCH [Suspect]
     Active Substance: RIVASTIGMINE
     Dosage: 13.3 MG, PATCH 15 (CM2)
     Route: 062
  7. MILGAMMA [Concomitant]
     Active Substance: VITAMIN B
     Indication: HYPOVITAMINOSIS
     Dosage: 150 MG, QD
     Route: 048

REACTIONS (13)
  - Nervousness [Recovering/Resolving]
  - Weight decreased [Recovering/Resolving]
  - Agitation [Recovering/Resolving]
  - Memory impairment [Not Recovered/Not Resolved]
  - Muscle rigidity [Recovering/Resolving]
  - Feeling abnormal [Recovering/Resolving]
  - Dizziness [Recovering/Resolving]
  - Polyneuropathy [Recovering/Resolving]
  - Pain in extremity [Recovering/Resolving]
  - Condition aggravated [Not Recovered/Not Resolved]
  - Somnolence [Recovering/Resolving]
  - Cholelithiasis [Recovering/Resolving]
  - Wrong technique in product usage process [Recovering/Resolving]
